FAERS Safety Report 8727045 (Version 3)
Quarter: 2012Q4

REPORT INFORMATION
  Report Type: Report from Study
  Country: CA (occurrence: CA)
  Receive Date: 20120816
  Receipt Date: 20120917
  Transmission Date: 20130627
  Serious: Yes (Hospitalization)
  Sender: FDA-Public Use
  Company Number: CA-GLAXOSMITHKLINE-A0989005A

PATIENT
  Age: 43 Year
  Sex: Male
  Weight: 108.8 kg

DRUGS (12)
  1. UNSPECIFIED INGREDIENT [Suspect]
     Indication: CHRONIC LYMPHOCYTIC LEUKAEMIA
     Dosage: 125MG Per day
     Route: 048
     Dates: start: 20120507
  2. OFATUMUMAB [Suspect]
     Indication: CHRONIC LYMPHOCYTIC LEUKAEMIA
     Route: 042
     Dates: start: 20120614
  3. PANTALOC [Concomitant]
     Indication: GASTROOESOPHAGEAL REFLUX DISEASE
     Dosage: 20MG Per day
     Route: 048
     Dates: start: 2008
  4. MORPHINE [Concomitant]
     Indication: PAIN
     Route: 048
     Dates: start: 20120315
  5. TYLENOL [Concomitant]
     Route: 048
     Dates: start: 1988
  6. IBUPROFEN [Concomitant]
     Indication: ABDOMINAL PAIN
     Dosage: 400MG As required
     Route: 048
     Dates: start: 20120508
  7. ALLOPURINOL [Concomitant]
     Indication: PROPHYLAXIS
     Dosage: 300MG Per day
     Route: 048
     Dates: start: 20120601
  8. PROBIOTIC [Concomitant]
     Indication: DIARRHOEA
     Dosage: 1TAB Per day
     Route: 048
     Dates: start: 20120524, end: 20120528
  9. BENADRYL [Concomitant]
     Indication: INFUSION RELATED REACTION
     Dates: start: 20120614
  10. RANITIDINE [Concomitant]
     Indication: GASTROOESOPHAGEAL REFLUX DISEASE
     Dosage: 150MG As required
     Route: 048
     Dates: start: 20120619
  11. CLOTRIMAZOLE CREAM [Concomitant]
     Indication: RASH
     Route: 061
     Dates: start: 20120629, end: 20120711
  12. GAVISCON [Concomitant]
     Indication: DYSPEPSIA
     Dosage: 6TAB Twice per day
     Route: 048
     Dates: start: 20120801, end: 20120801

REACTIONS (1)
  - Febrile neutropenia [Recovered/Resolved]
